FAERS Safety Report 6787762-3 (Version None)
Quarter: 2010Q2

REPORT INFORMATION
  Report Type: 
  Country: None (occurrence: None)
  Receive Date: 20100623
  Receipt Date: 20100617
  Transmission Date: 20101027
  Serious: Yes (Hospitalization)
  Sender: FDA-Public Use
  Company Number: US-GILEAD-2010-0029913

PATIENT
  Sex: Male
  Weight: 89.5 kg

DRUGS (9)
  1. LETAIRIS [Suspect]
     Indication: PULMONARY ARTERIAL HYPERTENSION
     Route: 048
  2. ASPIRIN [Concomitant]
  3. PLAVIX [Concomitant]
  4. COREG [Concomitant]
  5. LISINOPRIL [Concomitant]
  6. FOSRENOL [Concomitant]
  7. SENSIPAR [Concomitant]
  8. FLOMAX [Concomitant]
  9. LIPITOR [Concomitant]

REACTIONS (2)
  - PNEUMONIA [None]
  - PYREXIA [None]
